FAERS Safety Report 7397221-5 (Version None)
Quarter: 2011Q2

REPORT INFORMATION
  Report Type: 
  Country: None (occurrence: None)
  Receive Date: 20110406
  Receipt Date: 20110328
  Transmission Date: 20111010
  Serious: Yes (Hospitalization)
  Sender: FDA-Public Use
  Company Number: FR-ASTRAZENECA-2011SE18006

PATIENT
  Sex: Female

DRUGS (20)
  1. NEXIUM [Concomitant]
     Dates: start: 20110205, end: 20110214
  2. TERCIAN [Concomitant]
  3. ATENOLOL [Concomitant]
  4. NOVORAPID [Concomitant]
  5. PROGRAF [Suspect]
     Route: 048
     Dates: end: 20110213
  6. CORTANCYL [Concomitant]
     Dates: start: 20110214
  7. RAMIPRIL [Concomitant]
  8. CALCIDIA [Concomitant]
  9. MERONEM [Suspect]
     Route: 042
     Dates: start: 20110207, end: 20110213
  10. PROGRAF [Suspect]
     Route: 048
     Dates: start: 20110214
  11. KAYEXALATE [Concomitant]
  12. CREON [Concomitant]
  13. DEROXAT [Concomitant]
  14. EUPRESSYL [Concomitant]
  15. LASIX [Concomitant]
     Dates: start: 20110209, end: 20110211
  16. LEVEMIR [Concomitant]
  17. EXFORGE [Concomitant]
     Dosage: AMLODIPINE 5 MG+ VALSARTAN 160 MG, DAILY
  18. ROVALCYTE [Concomitant]
  19. CELLCEPT [Concomitant]
     Dates: start: 20110205
  20. KEPPRA [Concomitant]

REACTIONS (1)
  - CHOLESTASIS [None]
